FAERS Safety Report 23382748 (Version 1)
Quarter: 2024Q1

REPORT INFORMATION
  Report Type: Spontaneous
  Country: US (occurrence: None)
  Receive Date: 20240108
  Receipt Date: 20240108
  Transmission Date: 20240410
  Serious: Yes (Death)
  Sender: FDA-Public Use
  Company Number: None

PATIENT
  Age: 89 Year
  Sex: Male
  Weight: 79.47 kg

DRUGS (4)
  1. REVLIMID [Suspect]
     Active Substance: LENALIDOMIDE
     Indication: Plasma cell myeloma
     Dosage: FREQUENCY : DAILY;?
     Route: 048
     Dates: start: 20231021, end: 20231224
  2. NINLARO [Concomitant]
     Active Substance: IXAZOMIB CITRATE
     Dates: start: 20221028, end: 20230705
  3. DECADRON [Concomitant]
     Active Substance: DEXAMETHASONE
     Dates: start: 20221028, end: 20230705
  4. DARZALEX [Concomitant]
     Active Substance: DARATUMUMAB
     Dates: start: 20231116, end: 20231224

REACTIONS (1)
  - Death [None]

NARRATIVE: CASE EVENT DATE: 20231227
